FAERS Safety Report 21784670 (Version 5)
Quarter: 2024Q1

REPORT INFORMATION
  Report Type: Spontaneous
  Country: CA (occurrence: CA)
  Receive Date: 20221227
  Receipt Date: 20240103
  Transmission Date: 20240409
  Serious: Yes (Other)
  Sender: FDA-Public Use
  Company Number: CA-PFIZER INC-202200989863

PATIENT
  Age: 54 Year
  Sex: Female
  Weight: 100 kg

DRUGS (4)
  1. RUXIENCE [Suspect]
     Active Substance: RITUXIMAB-PVVR
     Indication: Rheumatoid arthritis
     Dosage: 1 G, DAY 1 AND DAY 15
     Route: 042
     Dates: start: 20220107, end: 20220107
  2. RUXIENCE [Suspect]
     Active Substance: RITUXIMAB-PVVR
     Dosage: 1 G, DAY 1 AND DAY 15
     Route: 042
     Dates: start: 20220107, end: 20220122
  3. RUXIENCE [Suspect]
     Active Substance: RITUXIMAB-PVVR
     Dosage: 1 G, DAY 1 AND DAY 15
     Route: 042
     Dates: start: 20220707
  4. METHOTREXATE [Concomitant]
     Active Substance: METHOTREXATE
     Dosage: 1 DF, UNK DOSE AND STATUS

REACTIONS (4)
  - Nephrolithiasis [Not Recovered/Not Resolved]
  - COVID-19 [Recovering/Resolving]
  - Dizziness [Recovering/Resolving]
  - Condition aggravated [Not Recovered/Not Resolved]

NARRATIVE: CASE EVENT DATE: 20220101
